FAERS Safety Report 7967407-7 (Version None)
Quarter: 2011Q4

REPORT INFORMATION
  Report Type: 
  Country: None (occurrence: None)
  Receive Date: 20111122
  Receipt Date: 20110714
  Transmission Date: 20120403
  Serious: No
  Sender: FDA-Public Use
  Company Number: PHHY2011US54789

PATIENT
  Age: 49 Year
  Sex: Female

DRUGS (16)
  1. GILENYA [Suspect]
     Indication: MULTIPLE SCLEROSIS
     Dosage: 0.5 MG, QD, ORAL
     Route: 048
     Dates: start: 20110613
  2. LIDOCAINE VISCOUS (LIDOCAINE HYDROCHLORIDE), 2 % [Concomitant]
  3. SERTRALINE HYDROCHLORIDE [Concomitant]
  4. LAXATIVES (NO INGREDIENTS/SUBSTANCES) [Concomitant]
  5. FLONASE (FLUTICASONE PROPIONATE), 0.05% [Concomitant]
  6. LORAZEPAM [Concomitant]
  7. PROCHLORPERAZINE (PROCHLORPERAZINE), 2.5 MG [Concomitant]
  8. OXYCONTIN (OXYCODONE HYDROCHLORIDE), 10 MG [Concomitant]
  9. VITAMIN D (ERGOCALCIFEROL), 2000 IU [Concomitant]
  10. GABAPENTIN [Concomitant]
  11. MEXILETINE HYDROCHLORIDE [Concomitant]
  12. MOTRIN [Concomitant]
  13. PRILOSEC (OMEPRAZOLE), 10 MG [Concomitant]
  14. PERCOCET (OXYCODONE HYDROCHLORIDE, PARACETAMOL), 10-325 MG [Concomitant]
  15. LUNESTA (ESZOPICLONE), 1 MG [Concomitant]
  16. HYDROXYZINE HYDROCHLORIDE (HYDROXYZINE HYDROCHLORIDE), 10 MG [Concomitant]

REACTIONS (6)
  - PAIN [None]
  - PAROSMIA [None]
  - LETHARGY [None]
  - HEADACHE [None]
  - MUSCULOSKELETAL PAIN [None]
  - PUDENDAL CANAL SYNDROME [None]
